FAERS Safety Report 9977283 (Version 1)
Quarter: 2014Q1

REPORT INFORMATION
  Report Type: Report from Study
  Country: US (occurrence: US)
  Receive Date: 20140306
  Receipt Date: 20140306
  Transmission Date: 20141002
  Serious: No
  Sender: FDA-Public Use
  Company Number: US-ABBVIE-13P-163-1165101-00

PATIENT
  Age: 23 Year
  Sex: Female

DRUGS (5)
  1. HUMIRA [Suspect]
     Indication: CROHN^S DISEASE
     Dates: start: 2011, end: 20131022
  2. HUMIRA [Suspect]
     Dates: start: 20121105, end: 20121105
  3. HUMIRA [Suspect]
     Dates: start: 20121119, end: 20131022
  4. AZATHIOPRINE [Concomitant]
     Indication: CROHN^S DISEASE
  5. IRON [Concomitant]
     Indication: ANAEMIA

REACTIONS (1)
  - Abdominal pain upper [Not Recovered/Not Resolved]
